FAERS Safety Report 9758368 (Version 2)
Quarter: 2014Q1

REPORT INFORMATION
  Report Type: Report from Study
  Country: FR (occurrence: FR)
  Receive Date: 20131216
  Receipt Date: 20140102
  Transmission Date: 20141002
  Serious: Yes (Hospitalization)
  Sender: FDA-Public Use
  Company Number: FR-ROCHE-1316633

PATIENT
  Age: 26 Year
  Sex: Female
  Weight: 93 kg

DRUGS (5)
  1. OBINUTUZUMAB [Suspect]
     Indication: DIFFUSE LARGE B-CELL LYMPHOMA
     Dosage: LAST DOSE PRIOR TO SAE 29/NOV/2013
     Route: 065
     Dates: start: 20131031
  2. CYCLOPHOSPHAMIDE [Suspect]
     Indication: LYMPHOMA
     Route: 065
     Dates: start: 20131031
  3. DOXORUBICIN [Suspect]
     Indication: LYMPHOMA
     Route: 065
     Dates: start: 20131031
  4. VINCRISTINE [Suspect]
     Indication: LYMPHOMA
     Route: 065
     Dates: start: 20131031
  5. PREDNISOLONE [Suspect]
     Indication: LYMPHOMA
     Route: 065
     Dates: start: 20131031

REACTIONS (1)
  - Oesophagitis [Recovered/Resolved]
